FAERS Safety Report 11129268 (Version 10)
Quarter: 2019Q2

REPORT INFORMATION
  Report Type: Spontaneous
  Country: US (occurrence: US)
  Receive Date: 20150521
  Receipt Date: 20190422
  Transmission Date: 20190711
  Serious: No
  Sender: FDA-Public Use
  Company Number: US-PFIZER INC-2015170397

PATIENT
  Age: 40 Year
  Sex: Female

DRUGS (20)
  1. TOPAMAX [Concomitant]
     Active Substance: TOPIRAMATE
     Dosage: UNK, 2X/DAY(1.5 IN THE MORNING AND 1 TABLET BEFORE BED)
  2. KLONOPIN [Concomitant]
     Active Substance: CLONAZEPAM
     Dosage: 0.5 MG, 2X/DAY(1 TABLET IN AM AND 1 TABLET BEFORE BED)
     Dates: start: 20160126
  3. DURAGESIC [Concomitant]
     Active Substance: FENTANYL
     Dosage: 25 UG, AS NEEDED (1 EVERY 3 DAYS AS TOLERATED)
     Dates: start: 20160303
  4. LYRICA [Suspect]
     Active Substance: PREGABALIN
     Indication: PAIN
     Dosage: 150 MG, 3X/DAY(2 CAPS Q 8 HOURS)
     Route: 048
     Dates: start: 20160513
  5. EFFEXOR XR [Concomitant]
     Active Substance: VENLAFAXINE HYDROCHLORIDE
     Dosage: 150 MG, 1X/DAY (1 TAB IN THE AM)
  6. LYRICA [Suspect]
     Active Substance: PREGABALIN
     Dosage: 300 MG, 3X/DAY
     Route: 048
  7. DURAGESIC [Concomitant]
     Active Substance: FENTANYL
     Dosage: 25 UG, 1 EVERY 3 DAYS
     Dates: start: 20160418
  8. OXYMORPHONE HCL [Concomitant]
     Active Substance: OXYMORPHONE HYDROCHLORIDE
     Dosage: 7.5 MG, 2X/DAY (TAKE ONE TABLET Q12 HOURS ONCE DURAGESIC HAS BEEN REMOVED FOR 12 HOURS OURS ONCE)
     Dates: start: 20160518
  9. CELEXA [Concomitant]
     Active Substance: CITALOPRAM HYDROBROMIDE
     Dosage: 10 MG, DAILY (ONE TABLET)
     Route: 048
  10. PROTONIX [Concomitant]
     Active Substance: PANTOPRAZOLE SODIUM
     Dosage: 40 MG, 2X/DAY
     Route: 048
  11. MS CONTIN [Concomitant]
     Active Substance: MORPHINE SULFATE
     Dosage: 15 MG, AS NEEDED(1 TAB EVERY 8 HOURS AS NEEDED)
     Dates: start: 20160126
  12. LYRICA [Suspect]
     Active Substance: PREGABALIN
     Indication: FIBROMYALGIA
     Dosage: 150 MG, 3X/DAY (2 CAPS EVERY 8 HOURS )
     Route: 048
     Dates: start: 20160610
  13. REMERON [Concomitant]
     Active Substance: MIRTAZAPINE
     Dosage: 15 MG, 1X/DAY (ONE TABLET AT BEDTIME)
     Route: 048
  14. OXYCONTIN [Concomitant]
     Active Substance: OXYCODONE HYDROCHLORIDE
     Dosage: 30 MG, 2X/DAY
     Route: 048
  15. PEPCID [Concomitant]
     Active Substance: FAMOTIDINE
     Dosage: 20 MG, 2X/DAY
     Route: 048
  16. HYDROXYZINE HCL [Concomitant]
     Active Substance: HYDROXYZINE HYDROCHLORIDE
     Dosage: 25 MG, 4X/DAY
     Route: 048
  17. OXYMORPHONE HCL [Concomitant]
     Active Substance: OXYMORPHONE HYDROCHLORIDE
     Dosage: 7.5 MG, 1X/DAY(1 PO ONCE A DAY FOR 7 DAYS THEN)
     Route: 048
     Dates: start: 20160618
  18. LYRICA [Suspect]
     Active Substance: PREGABALIN
     Indication: INTERVERTEBRAL DISC DEGENERATION
     Dosage: 150 MG, 3X/DAY (2 CAPS EVERY 8 HOURS)
     Route: 048
  19. SENOKOT /00571901/ [Concomitant]
     Active Substance: SENNOSIDES A AND B
     Dosage: 17.2 MG, 2X/DAY(2 TABS IN THE AM AND 2 TABS IN THE PM)
  20. KEPPRA [Concomitant]
     Active Substance: LEVETIRACETAM
     Dosage: 750 MG, 3X/DAY
     Route: 048

REACTIONS (4)
  - Pain [Unknown]
  - Gait disturbance [Unknown]
  - Prescribed overdose [Unknown]
  - Malaise [Unknown]
